FAERS Safety Report 9941105 (Version 8)
Quarter: 2014Q3

REPORT INFORMATION
  Report Type: Report from Study
  Country: KR (occurrence: KR)
  Receive Date: 20140303
  Receipt Date: 20140729
  Transmission Date: 20150326
  Serious: Yes (Hospitalization)
  Sender: FDA-Public Use
  Company Number: KR-ONYX-2014-0425

PATIENT
  Age: 58 Year
  Sex: Female

DRUGS (53)
  1. CARFILZOMIB [Suspect]
     Active Substance: CARFILZOMIB
     Route: 042
     Dates: start: 20140113, end: 20140114
  2. LEVOFLOXACIN [Concomitant]
     Active Substance: LEVOFLOXACIN
     Indication: PNEUMONIA
     Route: 042
     Dates: start: 20140120, end: 20140203
  3. ACTIFED [Concomitant]
     Active Substance: PSEUDOEPHEDRINE HYDROCHLORIDE\TRIPROLIDINE HYDROCHLORIDE
     Indication: INFLUENZA LIKE ILLNESS
     Route: 048
     Dates: start: 20140122, end: 20140124
  4. TEICOPLANIN [Concomitant]
     Active Substance: TEICOPLANIN
     Indication: PNEUMONIA
     Route: 042
     Dates: start: 20140124, end: 20140127
  5. SEPTRIN [Concomitant]
     Active Substance: SULFAMETHOXAZOLE\TRIMETHOPRIM
     Indication: INFECTION PROPHYLAXIS
     Route: 048
     Dates: start: 20140123, end: 20140203
  6. SUCRALFATE. [Concomitant]
     Active Substance: SUCRALFATE
     Indication: GASTRITIS PROPHYLAXIS
     Route: 048
     Dates: start: 20140203
  7. CARFILZOMIB [Suspect]
     Active Substance: CARFILZOMIB
     Indication: PLASMA CELL MYELOMA
     Route: 042
     Dates: start: 20140106, end: 20140107
  8. DEXAMETHASONE. [Suspect]
     Active Substance: DEXAMETHASONE
     Indication: PLASMA CELL MYELOMA
     Route: 048
     Dates: start: 20140106, end: 20140114
  9. FUROSEMIDE. [Concomitant]
     Active Substance: FUROSEMIDE
     Indication: PLEURAL EFFUSION
     Route: 042
     Dates: start: 20140106, end: 20140107
  10. FENTANYL CITRATE. [Concomitant]
     Active Substance: FENTANYL CITRATE
     Indication: PROPHYLAXIS
     Route: 042
     Dates: start: 20140124, end: 20140124
  11. ADCAL [Concomitant]
     Indication: PROPHYLAXIS
     Route: 048
     Dates: start: 20140210, end: 20140217
  12. HEPA-MERZ INFUSION [Concomitant]
     Indication: ASPARTATE AMINOTRANSFERASE INCREASED
  13. CARDUUS MARIANUS [Concomitant]
     Indication: ASPARTATE AMINOTRANSFERASE INCREASED
  14. L-ASPARTIC ACID [Concomitant]
     Indication: ASPARTATE AMINOTRANSFERASE INCREASED
  15. METRONIDAZOLE. [Concomitant]
     Active Substance: METRONIDAZOLE
     Indication: DIARRHOEA
     Route: 048
     Dates: start: 20140117, end: 20140124
  16. PREDNISOLONE. [Concomitant]
     Active Substance: PREDNISOLONE
     Route: 048
     Dates: start: 20140124, end: 20140128
  17. PREDNISOLONE. [Concomitant]
     Active Substance: PREDNISOLONE
     Route: 048
     Dates: start: 20140129, end: 20140129
  18. PREDNISOLONE. [Concomitant]
     Active Substance: PREDNISOLONE
     Route: 048
     Dates: start: 20140201, end: 20140202
  19. DEXTROSE, NACL, KCL [Concomitant]
     Indication: DECREASED APPETITE
     Route: 042
     Dates: start: 20140118, end: 20140203
  20. FUROSEMIDE. [Concomitant]
     Active Substance: FUROSEMIDE
     Route: 042
     Dates: start: 20140203, end: 20140204
  21. PREDNISOLONE. [Concomitant]
     Active Substance: PREDNISOLONE
     Indication: DYSPNOEA
     Route: 048
     Dates: start: 20140123, end: 20140123
  22. ALLOPURINOL. [Concomitant]
     Active Substance: ALLOPURINOL
     Indication: PROPHYLAXIS
     Route: 048
     Dates: start: 20140203, end: 20140203
  23. HEPA-MERZ INFUSION [Concomitant]
     Indication: BLOOD ALKALINE PHOSPHATASE INCREASED
     Dates: start: 20140114, end: 20140121
  24. CARFILZOMIB [Suspect]
     Active Substance: CARFILZOMIB
     Route: 042
     Dates: start: 20140331
  25. CARDUUS MARIANUS [Concomitant]
     Indication: BLOOD ALKALINE PHOSPHATASE INCREASED
     Route: 048
     Dates: start: 20140114, end: 20140121
  26. PROPACETAMOL HCL [Concomitant]
     Indication: PNEUMONIA
     Route: 030
     Dates: start: 20140117, end: 20140123
  27. METOCLOPRAMIDE. [Concomitant]
     Active Substance: METOCLOPRAMIDE
     Route: 042
     Dates: start: 20140124, end: 20140128
  28. IPRATROPIUM BROMIDE. [Concomitant]
     Active Substance: IPRATROPIUM BROMIDE
     Indication: PNEUMONIA
     Route: 055
     Dates: start: 20140122, end: 20140128
  29. ZOLPIDEM TARTRATE. [Concomitant]
     Active Substance: ZOLPIDEM TARTRATE
     Indication: INSOMNIA
     Route: 048
     Dates: start: 20140130, end: 20140130
  30. SEPTRIN [Concomitant]
     Active Substance: SULFAMETHOXAZOLE\TRIMETHOPRIM
     Route: 048
     Dates: start: 20140204, end: 20140216
  31. CARFILZOMIB [Suspect]
     Active Substance: CARFILZOMIB
     Route: 042
     Dates: start: 20140203, end: 20140218
  32. DEXAMETHASONE. [Suspect]
     Active Substance: DEXAMETHASONE
     Route: 048
     Dates: start: 20140203, end: 20140218
  33. DEXAMETHASONE. [Suspect]
     Active Substance: DEXAMETHASONE
     Route: 048
     Dates: start: 20140224
  34. KETOPROFEN. [Concomitant]
     Active Substance: KETOPROFEN
     Indication: INFLUENZA LIKE ILLNESS
     Route: 042
     Dates: start: 20140121, end: 20140121
  35. METOCLOPRAMIDE. [Concomitant]
     Active Substance: METOCLOPRAMIDE
     Indication: DYSPEPSIA
     Route: 042
     Dates: start: 20140121, end: 20140123
  36. ACETYLCYSTEINE. [Concomitant]
     Active Substance: ACETYLCYSTEINE
     Route: 055
     Dates: start: 20140126, end: 20140126
  37. PREDNISOLONE. [Concomitant]
     Active Substance: PREDNISOLONE
     Route: 048
     Dates: start: 20140130, end: 20140130
  38. PREDNISOLONE. [Concomitant]
     Active Substance: PREDNISOLONE
     Route: 048
     Dates: start: 20140131, end: 20140131
  39. SEPTRIN [Concomitant]
     Active Substance: SULFAMETHOXAZOLE\TRIMETHOPRIM
     Indication: PNEUMONIA
     Route: 048
     Dates: start: 20140120, end: 20140121
  40. FLUCONAZOLE. [Concomitant]
     Active Substance: FLUCONAZOLE
     Indication: INFECTION PROPHYLAXIS
     Route: 048
     Dates: start: 20140203, end: 20140216
  41. L-ASPARTIC ACID [Concomitant]
     Indication: BLOOD ALKALINE PHOSPHATASE INCREASED
     Route: 048
     Dates: start: 20140115, end: 20140121
  42. CEFEPIME [Concomitant]
     Active Substance: CEFEPIME\CEFEPIME HYDROCHLORIDE
     Indication: PNEUMONIA
     Route: 042
     Dates: start: 20140117, end: 20140130
  43. SODIUM CHLORIDE. [Concomitant]
     Active Substance: SODIUM CHLORIDE
     Indication: DECREASED APPETITE
     Route: 042
     Dates: start: 20140118, end: 20140203
  44. COMBIFLEX PERI [Concomitant]
     Indication: DECREASED APPETITE
     Route: 042
     Dates: start: 20140118, end: 20140129
  45. OSELTAMIVIR [Concomitant]
     Active Substance: OSELTAMIVIR
     Indication: INFECTION PROPHYLAXIS
     Route: 048
     Dates: start: 20140120, end: 20140123
  46. KETOPROFEN. [Concomitant]
     Active Substance: KETOPROFEN
     Route: 042
     Dates: start: 20140123, end: 20140123
  47. FUROSEMIDE. [Concomitant]
     Active Substance: FUROSEMIDE
     Indication: HYPERVOLAEMIA
     Route: 042
     Dates: start: 20140123, end: 20140126
  48. MORPHINE HCL [Concomitant]
     Active Substance: MORPHINE HYDROCHLORIDE
     Indication: INFLUENZA LIKE ILLNESS
     Route: 042
     Dates: start: 20140124, end: 20140124
  49. POTASSIUM CHLORIDE. [Concomitant]
     Active Substance: POTASSIUM CHLORIDE
     Indication: HYPOKALAEMIA
     Route: 042
     Dates: start: 20140118, end: 20140124
  50. PAMIDRONATE [Concomitant]
     Active Substance: PAMIDRONATE DISODIUM
     Indication: PROPHYLAXIS
     Route: 042
     Dates: start: 20140106
  51. MEGESTROL ACETATE. [Concomitant]
     Active Substance: MEGESTROL ACETATE
     Indication: DECREASED APPETITE
     Route: 048
     Dates: start: 20140120, end: 20140129
  52. ACETYLCYSTEINE. [Concomitant]
     Active Substance: ACETYLCYSTEINE
     Indication: PNEUMONIA
     Route: 055
     Dates: start: 20140122, end: 20140130
  53. TRAMADOL HCL [Concomitant]
     Active Substance: TRAMADOL HYDROCHLORIDE
     Indication: INFLUENZA LIKE ILLNESS
     Route: 042
     Dates: start: 20140125, end: 20140126

REACTIONS (1)
  - Atrial fibrillation [Recovered/Resolved]

NARRATIVE: CASE EVENT DATE: 20140221
